FAERS Safety Report 4336804-3 (Version None)
Quarter: 2004Q2

REPORT INFORMATION
  Report Type: 
  Country: None (occurrence: None)
  Receive Date: 20040407
  Receipt Date: 20040330
  Transmission Date: 20050107
  Serious: Yes (Congenital Anomaly, Other)
  Sender: FDA-Public Use
  Company Number: US-JNJFOC-20040306744

PATIENT
  Age: 25 Week
  Sex: 0

DRUGS (3)
  1. TOPAMAX [Suspect]
     Indication: MATERNAL DRUGS AFFECTING FOETUS
     Dosage: TRANSPLACENTAL
     Route: 064
  2. PLAQUENIL [Concomitant]
  3. ANTICOAGULANT MEDICATION (ALL OTHER THERAPEUTIC PRODUCTS) [Concomitant]

REACTIONS (3)
  - LIMB REDUCTION DEFECT [None]
  - MATERNAL DRUGS AFFECTING FOETUS [None]
  - PREMATURE BABY [None]
